FAERS Safety Report 21917391 (Version 1)
Quarter: 2023Q1

REPORT INFORMATION
  Report Type: Report from Study
  Country: BR (occurrence: BR)
  Receive Date: 20230126
  Receipt Date: 20230126
  Transmission Date: 20230418
  Serious: Yes (Hospitalization)
  Sender: FDA-Public Use
  Company Number: BR-CELLTRION INC.-2023BR001591

PATIENT

DRUGS (3)
  1. INFLIXIMAB [Suspect]
     Active Substance: INFLIXIMAB
     Indication: Crohn^s disease
     Dosage: 3 AMPOULES - 100 MG - EVERY 4 WEEKS
     Route: 042
     Dates: start: 20221017
  2. INFLIXIMAB [Suspect]
     Active Substance: INFLIXIMAB
     Dosage: 3 AMPOULES - 100 MG - EVERY 4 WEEKS
     Route: 042
     Dates: start: 20230111
  3. PREDNISOLONE [Concomitant]
     Active Substance: PREDNISOLONE
     Indication: Pain
     Dosage: STARR: FOR MORE THAN 2 MONTHS
     Route: 048

REACTIONS (10)
  - Abdominal distension [Unknown]
  - Memory impairment [Unknown]
  - Swelling face [Unknown]
  - Malaise [Unknown]
  - Condition aggravated [Unknown]
  - Urinary tract infection [Unknown]
  - Swelling [Unknown]
  - Pain [Unknown]
  - Off label use [Unknown]
  - Underdose [Unknown]

NARRATIVE: CASE EVENT DATE: 20221224
